APPROVED DRUG PRODUCT: BRETHINE
Active Ingredient: TERBUTALINE SULFATE
Strength: 2.5MG **Federal Register determination that product was not discontinued or withdrawn for safety or effectiveness reasons**
Dosage Form/Route: TABLET;ORAL
Application: N017849 | Product #001 | TE Code: AB
Applicant: ANI PHARMACEUTICALS INC
Approved: Approved Prior to Jan 1, 1982 | RLD: Yes | RS: No | Type: RX